FAERS Safety Report 24458024 (Version 1)
Quarter: 2024Q4

REPORT INFORMATION
  Report Type: Spontaneous
  Country: CN (occurrence: CN)
  Receive Date: 20241018
  Receipt Date: 20241018
  Transmission Date: 20250114
  Serious: Yes (Hospitalization, Other)
  Sender: SANOFI AVENTIS
  Company Number: CN-SA-2024SA293260

PATIENT
  Age: 44 Year
  Sex: Male
  Weight: 67 kg

DRUGS (1)
  1. SOLIQUA 100/33 [Suspect]
     Active Substance: INSULIN GLARGINE\LIXISENATIDE
     Indication: Blood glucose increased
     Dosage: 12 U, QD
     Route: 058
     Dates: start: 20240925, end: 20240925

REACTIONS (9)
  - Angioedema [Recovered/Resolved]
  - Pruritus [Recovered/Resolved]
  - Rash [Recovered/Resolved]
  - Tachypnoea [Recovered/Resolved]
  - Swelling of eyelid [Recovered/Resolved]
  - Abdominal distension [Recovered/Resolved]
  - Peripheral swelling [Recovered/Resolved]
  - Urticaria [Recovered/Resolved]
  - Abdominal pain [Recovered/Resolved]

NARRATIVE: CASE EVENT DATE: 20240925
